FAERS Safety Report 18260523 (Version 1)
Quarter: 2020Q3

REPORT INFORMATION
  Report Type: Report from Study
  Country: IT (occurrence: IT)
  Receive Date: 20200914
  Receipt Date: 20200914
  Transmission Date: 20201103
  Serious: Yes (Hospitalization)
  Sender: FDA-Public Use
  Company Number: IT-TEVA-2020-IT-1825555

PATIENT
  Age: 35 Year
  Sex: Male

DRUGS (4)
  1. CLONAZEPAM. [Suspect]
     Active Substance: CLONAZEPAM
     Indication: DRUG ABUSE
     Dosage: 5 DOSAGE FORMS
     Route: 048
  2. CLOZAPINE. [Suspect]
     Active Substance: CLOZAPINE
     Indication: DRUG ABUSE
     Dosage: 375MG
     Route: 048
  3. CARBOLITHIUM 150 MG CAPSULE RIGIDE [Concomitant]
     Active Substance: LITHIUM CARBONATE
     Indication: DEPRESSION
     Dosage: 3 DOSAGE FORMS
     Route: 048
  4. EFEXOR 75 MG CAPSULE RIGIDE A RILASCIO PROLUNGATO [Concomitant]
     Active Substance: VENLAFAXINE HYDROCHLORIDE
     Indication: DEPRESSION
     Dosage: 3 DOSAGE FORMS
     Route: 048

REACTIONS (4)
  - Tachycardia [Recovering/Resolving]
  - Sopor [Recovering/Resolving]
  - Bradyphrenia [Recovering/Resolving]
  - Drug abuse [Recovering/Resolving]

NARRATIVE: CASE EVENT DATE: 20200720
